FAERS Safety Report 18232789 (Version 1)
Quarter: 2020Q3

REPORT INFORMATION
  Report Type: Spontaneous
  Country: US (occurrence: US)
  Receive Date: 20200904
  Receipt Date: 20200904
  Transmission Date: 20201103
  Serious: No
  Sender: FDA-Public Use
  Company Number: None

PATIENT
  Age: 72 Year
  Sex: Male
  Weight: 110.68 kg

DRUGS (18)
  1. EPIPEN?2PAK [Concomitant]
  2. MIRALAX 17 GM [Concomitant]
  3. DICLOFENAC SODIUM 75MG [Concomitant]
     Active Substance: DICLOFENAC SODIUM
  4. BACTRIM 400/80 [Concomitant]
  5. PROCRIT 10000UNIT/ML [Concomitant]
  6. METOPROLOL SUCCINATE 150MG [Concomitant]
  7. ASPIRIN 81MG [Concomitant]
     Active Substance: ASPIRIN
  8. VITAMIN D31000 UNIT [Concomitant]
  9. COPIKTRA [Suspect]
     Active Substance: DUVELISIB
     Indication: CHRONIC LYMPHOCYTIC LEUKAEMIA
     Route: 048
     Dates: start: 20200513
  10. PROCTOSOL 2.5% [Concomitant]
  11. DOXYCYCLINE HYCLATE 100MG [Concomitant]
     Active Substance: DOXYCYCLINE HYCLATE
  12. ALLOPURINOL 400MG [Concomitant]
  13. MOMETASONE FUROATE. [Concomitant]
     Active Substance: MOMETASONE FUROATE
  14. TORSEMIDE 20MG [Concomitant]
     Active Substance: TORSEMIDE
  15. DILTIAZEM CD 120MG [Concomitant]
  16. FOLIC ACID 1200 MCG [Concomitant]
  17. THERAWORX RELIEF [Concomitant]
  18. STOOL SOFTNER 100MG [Concomitant]

REACTIONS (1)
  - Lymphoedema [None]
